FAERS Safety Report 19010009 (Version 1)
Quarter: 2021Q1

REPORT INFORMATION
  Report Type: Spontaneous
  Country: IN (occurrence: IN)
  Receive Date: 20210315
  Receipt Date: 20210315
  Transmission Date: 20210420
  Serious: Yes (Hospitalization, Other)
  Sender: FDA-Public Use
  Company Number: IN-LUPIN PHARMACEUTICALS INC.-2021-03252

PATIENT
  Age: 44 Year
  Sex: Female

DRUGS (3)
  1. BETAMETHASONE. [Suspect]
     Active Substance: BETAMETHASONE
     Indication: SCLERITIS
     Dosage: UNK 1PERCENT HOURLY
     Route: 061
  2. INDOMETACIN [Concomitant]
     Active Substance: INDOMETHACIN
     Indication: PAIN
     Dosage: 75 MILLIGRAM
     Route: 048
  3. PREDNISOLONE. [Suspect]
     Active Substance: PREDNISOLONE
     Indication: SCLERITIS
     Dosage: 1 MILLIGRAM/KILOGRAM, QD
     Route: 048

REACTIONS (5)
  - Condition aggravated [Recovered/Resolved]
  - Fungal infection [Recovered/Resolved]
  - Necrotising scleritis [Recovered/Resolved]
  - Eye abscess [Recovered/Resolved]
  - Scleritis [Recovered/Resolved]
